FAERS Safety Report 9350562 (Version 1)
Quarter: 2013Q2

REPORT INFORMATION
  Report Type: Spontaneous
  Country: CN (occurrence: CN)
  Receive Date: 20130617
  Receipt Date: 20130617
  Transmission Date: 20140414
  Serious: Yes (Other)
  Sender: FDA-Public Use
  Company Number: CN-JNJFOC-20130605560

PATIENT
  Age: 26 Year
  Sex: Male

DRUGS (3)
  1. TYLENOL COLD [Suspect]
     Indication: NASAL CONGESTION
     Route: 048
     Dates: start: 20120821
  2. TYLENOL COLD [Suspect]
     Indication: DIZZINESS
     Route: 048
     Dates: start: 20120821
  3. TYLENOL COLD [Suspect]
     Indication: NASOPHARYNGITIS
     Route: 048
     Dates: start: 20120821

REACTIONS (4)
  - Myocardial infarction [Not Recovered/Not Resolved]
  - Syncope [Recovered/Resolved]
  - Hypertension [Recovered/Resolved]
  - Loss of consciousness [Recovered/Resolved]
